FAERS Safety Report 5803792-X (Version None)
Quarter: 2008Q3

REPORT INFORMATION
  Report Type: 
  Country: None (occurrence: None)
  Receive Date: 20080708
  Receipt Date: 20080512
  Transmission Date: 20090109
  Serious: No
  Sender: FDA-Public Use
  Company Number: US-AMGEN-KDL279041

PATIENT
  Sex: Male

DRUGS (2)
  1. KINERET [Suspect]
     Indication: JUVENILE ARTHRITIS
     Route: 058
     Dates: start: 20080508
  2. METHOTREXATE [Concomitant]

REACTIONS (4)
  - CHILLS [None]
  - EXOPHTHALMOS [None]
  - HYPERHIDROSIS [None]
  - VOMITING [None]
